FAERS Safety Report 17963504 (Version 2)
Quarter: 2020Q3

REPORT INFORMATION
  Report Type: Spontaneous
  Country: US (occurrence: US)
  Receive Date: 20200630
  Receipt Date: 20200706
  Transmission Date: 20201103
  Serious: No
  Sender: FDA-Public Use
  Company Number: US-JNJFOC-20200636572

PATIENT
  Sex: Male
  Weight: 106.69 kg

DRUGS (2)
  1. SPRAVATO [Suspect]
     Active Substance: ESKETAMINE
     Indication: DEPRESSION
     Dosage: 2 DOSES COMPLETED. SECOND DOSE ON 23?6?2020
     Dates: start: 20200618
  2. SPRAVATO [Suspect]
     Active Substance: ESKETAMINE

REACTIONS (1)
  - Urinary tract infection [Recovering/Resolving]

NARRATIVE: CASE EVENT DATE: 2020
